FAERS Safety Report 23517924 (Version 1)
Quarter: 2024Q1

REPORT INFORMATION
  Report Type: 
  Country: None (occurrence: None)
  Receive Date: 20240213
  Receipt Date: 20240213
  Transmission Date: 20240410
  Serious: No
  Sender: FDA-Public Use
  Company Number: DE-ROCHE-3505830

PATIENT

DRUGS (8)
  1. POLATUZUMAB VEDOTIN [Suspect]
     Active Substance: POLATUZUMAB VEDOTIN
     Dosage: 1 X CYCLE
     Dates: start: 20240123, end: 20240123
  2. RITUXIMAB [Suspect]
     Active Substance: RITUXIMAB
     Dosage: 1 X CYCLE
     Dates: start: 20240123, end: 20240123
  3. IFOSFAMIDE [Suspect]
     Active Substance: IFOSFAMIDE
     Dosage: FROM DAY 2 TO DAY 3
     Dates: start: 20240124, end: 20240125
  4. CARBOPLATIN [Suspect]
     Active Substance: CARBOPLATIN
     Dosage: 1 X CYCLE
     Dates: start: 20240124, end: 20240124
  5. ETOPOSIDE [Suspect]
     Active Substance: ETOPOSIDE
     Dosage: 3 X CYCLE
     Dates: start: 20240123, end: 20240125
  6. AMLODIPINE [Concomitant]
     Active Substance: AMLODIPINE BESYLATE
     Dates: start: 20190612
  7. OLMESARTAN [Concomitant]
     Active Substance: OLMESARTAN
     Dates: start: 20190612
  8. HYDROCHLOROTHIAZIDE [Concomitant]
     Active Substance: HYDROCHLOROTHIAZIDE
     Dates: start: 20190612

REACTIONS (2)
  - Escherichia bacteraemia [None]
  - COVID-19 [None]

NARRATIVE: CASE EVENT DATE: 20240202
